FAERS Safety Report 8140502-8 (Version None)
Quarter: 2012Q1

REPORT INFORMATION
  Report Type: 
  Country: None (occurrence: None)
  Receive Date: 20120216
  Receipt Date: 20120213
  Transmission Date: 20120608
  Serious: Yes (Hospitalization, Other)
  Sender: FDA-Public Use
  Company Number: US-PFIZER INC-2012038763

PATIENT
  Sex: Female

DRUGS (1)
  1. TIKOSYN [Suspect]
     Dosage: UNK

REACTIONS (8)
  - CYSTITIS [None]
  - SINUS DISORDER [None]
  - CHEST PAIN [None]
  - MEDICATION ERROR [None]
  - KIDNEY INFECTION [None]
  - HEADACHE [None]
  - ABDOMINAL PAIN UPPER [None]
  - RENAL HAEMORRHAGE [None]
